FAERS Safety Report 25082141 (Version 1)
Quarter: 2025Q1

REPORT INFORMATION
  Report Type: Spontaneous
  Country: AE (occurrence: AE)
  Receive Date: 20250317
  Receipt Date: 20250317
  Transmission Date: 20250409
  Serious: Yes (Hospitalization, Other)
  Sender: IPCA
  Company Number: AE-IPCA LABORATORIES LIMITED-IPC-2025-AE-000581

PATIENT

DRUGS (4)
  1. METFORMIN [Suspect]
     Active Substance: METFORMIN HYDROCHLORIDE
     Indication: Type 2 diabetes mellitus
     Route: 065
  2. ALOGLIPTIN [Concomitant]
     Active Substance: ALOGLIPTIN
     Indication: Type 2 diabetes mellitus
     Route: 065
  3. EMPAGLIFLOZIN [Concomitant]
     Active Substance: EMPAGLIFLOZIN
     Indication: Type 2 diabetes mellitus
     Route: 065
  4. METHYLCOBALAMIN [Concomitant]
     Active Substance: METHYLCOBALAMIN
     Indication: Type 2 diabetes mellitus
     Route: 065

REACTIONS (3)
  - Autoimmune haemolytic anaemia [Recovered/Resolved]
  - Hyperbilirubinaemia [Recovered/Resolved]
  - Blood lactate dehydrogenase increased [Recovered/Resolved]
